FAERS Safety Report 7429342-2 (Version None)
Quarter: 2011Q2

REPORT INFORMATION
  Report Type: 
  Country: None (occurrence: None)
  Receive Date: 20110418
  Receipt Date: 20110418
  Transmission Date: 20111010
  Serious: No
  Sender: FDA-Public Use
  Company Number: None

PATIENT
  Sex: Male

DRUGS (1)
  1. FENTANYL [Suspect]
     Indication: NEOPLASM MALIGNANT
     Dosage: 25 MCG 72HRS

REACTIONS (3)
  - PRODUCT QUALITY ISSUE [None]
  - ASTHENIA [None]
  - DIZZINESS [None]
